FAERS Safety Report 14261137 (Version 1)
Quarter: 2017Q4

REPORT INFORMATION
  Report Type: Spontaneous
  Country: US (occurrence: US)
  Receive Date: 20171207
  Receipt Date: 20171207
  Transmission Date: 20180321
  Serious: Yes (Life-Threatening, Disabling)
  Sender: FDA-Public Use
  Company Number: None

PATIENT
  Age: 54 Year
  Sex: Female
  Weight: 80.1 kg

DRUGS (8)
  1. LOSARTAN. [Concomitant]
     Active Substance: LOSARTAN
  2. TIMOLOL. [Concomitant]
     Active Substance: TIMOLOL
  3. ASPIRIN. [Concomitant]
     Active Substance: ASPIRIN
  4. LAMOTRIGINE. [Suspect]
     Active Substance: LAMOTRIGINE
     Indication: SEIZURE
     Dosage: ?          QUANTITY:240 TABLET(S);?
     Route: 048
     Dates: start: 20171018, end: 20171021
  5. CITALOPRAM [Concomitant]
     Active Substance: CITALOPRAM HYDROBROMIDE
  6. METORMIN [Concomitant]
     Active Substance: METFORMIN HYDROCHLORIDE
  7. BASAGLAR [Concomitant]
     Active Substance: INSULIN GLARGINE
  8. VITAMIN [Concomitant]
     Active Substance: VITAMINS

REACTIONS (5)
  - Seizure [None]
  - Rash generalised [None]
  - Condition aggravated [None]
  - Dyspnoea [None]
  - Peripheral swelling [None]

NARRATIVE: CASE EVENT DATE: 20171018
